FAERS Safety Report 5580205-7 (Version None)
Quarter: 2008Q1

REPORT INFORMATION
  Report Type: 
  Country: None (occurrence: None)
  Receive Date: 20080103
  Receipt Date: 20071227
  Transmission Date: 20080703
  Serious: Yes (Hospitalization)
  Sender: FDA-Public Use
  Company Number: JP-ALLERGAN-0714323US

PATIENT
  Sex: Male

DRUGS (4)
  1. BOTOX [Suspect]
     Indication: DRUG USE FOR UNKNOWN INDICATION
     Dosage: UNK, SINGLE
     Dates: start: 20071206, end: 20071206
  2. BOTOX [Suspect]
     Indication: DRUG USE FOR UNKNOWN INDICATION
     Dosage: UNK, SINGLE
     Dates: start: 20071206, end: 20071206
  3. SELENICA-R [Concomitant]
     Indication: EPILEPSY
     Dosage: 200 MG, QD
     Route: 048
  4. SELENICA-R [Concomitant]
     Dosage: 800 MG, QD
     Route: 048

REACTIONS (1)
  - CONVULSION [None]
